FAERS Safety Report 17200712 (Version 1)
Quarter: 2019Q4

REPORT INFORMATION
  Report Type: Spontaneous
  Country: CA (occurrence: CA)
  Receive Date: 20191226
  Receipt Date: 20191226
  Transmission Date: 20200122
  Serious: Yes (Hospitalization, Other)
  Sender: FDA-Public Use
  Company Number: CA-DRREDDYS-USA/CAN/19/0117713

PATIENT
  Age: 29 Year
  Sex: Female

DRUGS (3)
  1. PROMETRIUM [Suspect]
     Active Substance: PROGESTERONE
     Indication: PREGNANCY
     Route: 048
  2. PROGESTERONE CAPSULES [Suspect]
     Active Substance: PROGESTERONE
     Indication: SUPPORTIVE CARE
     Route: 065
  3. PROGESTERONE CAPSULES [Suspect]
     Active Substance: PROGESTERONE
     Indication: PREGNANCY
     Route: 048

REACTIONS (6)
  - Speech disorder [Recovered/Resolved]
  - Contraindicated product administered [Recovered/Resolved]
  - Live birth [Recovered/Resolved]
  - Mastication disorder [Recovered/Resolved]
  - Pyogenic granuloma [Recovered/Resolved]
  - Maternal exposure during pregnancy [Recovered/Resolved]
